FAERS Safety Report 13957279 (Version 1)
Quarter: 2017Q3

REPORT INFORMATION
  Report Type: Spontaneous
  Country: IR (occurrence: IR)
  Receive Date: 20170911
  Receipt Date: 20170911
  Transmission Date: 20171128
  Serious: Yes (Other)
  Sender: FDA-Public Use
  Company Number: IR-CORDEN PHARMA LATINA S.P.A.-IR-2017COR000192

PATIENT

DRUGS (6)
  1. ETOPOSIDE. [Suspect]
     Active Substance: ETOPOSIDE
     Indication: OSTEOSARCOMA
     Dosage: 100 MG/M2 FOR 3 DAYS OVER 21 DAY CYCLE
     Route: 042
  2. IFOSFAMIDE. [Suspect]
     Active Substance: IFOSFAMIDE
     Indication: OSTEOSARCOMA
     Dosage: 2 G/M2 FOR SIX DAYS OVER 21 DAY CYCLE
     Route: 042
  3. MESNA. [Suspect]
     Active Substance: MESNA
     Indication: OSTEOSARCOMA
     Dosage: 2 G/M2 FOR SIX DAYS
     Route: 042
  4. ADRIAMYCIN [Suspect]
     Active Substance: DOXORUBICIN HYDROCHLORIDE
     Indication: OSTEOSARCOMA
     Dosage: 25 MG/M2 FOR 10 MINUTES ON DAY 1 AND 2 FOR 21 DAY CYCLE
     Route: 042
  5. G-CSF [Suspect]
     Active Substance: GRANULOCYTE COLONY-STIMULATING FACTOR NOS
     Indication: PRODUCT USED FOR UNKNOWN INDICATION
     Dosage: EVERY ALTERNATE DAY FROM 24 HOURS AFTER CHEMOTHERAPY ENDING
  6. CISPLATIN. [Suspect]
     Active Substance: CISPLATIN
     Indication: OSTEOSARCOMA
     Dosage: 30 MG/M2 IN 1.5 HOURS ON DAY 1 AND 2 FOR 21 DAY CYCLE
     Route: 042

REACTIONS (1)
  - Cardiomyopathy [Unknown]
